FAERS Safety Report 7609974-9 (Version None)
Quarter: 2011Q3

REPORT INFORMATION
  Report Type: 
  Country: None (occurrence: None)
  Receive Date: 20110714
  Receipt Date: 20110711
  Transmission Date: 20111222
  Serious: Yes (Hospitalization, Disabling, Other)
  Sender: FDA-Public Use
  Company Number: US-MERCK-1105USA02747

PATIENT
  Age: 54 Year
  Sex: Female

DRUGS (31)
  1. FOSAMAX [Suspect]
     Indication: OSTEOPOROSIS
     Route: 048
     Dates: start: 19980101, end: 20101201
  2. FOSAMAX PLUS D [Suspect]
     Indication: OSTEOPOROSIS
     Route: 048
     Dates: start: 20090101, end: 20110401
  3. FOSAMAX PLUS D [Suspect]
     Route: 048
     Dates: start: 20090101, end: 20110401
  4. PROVERA [Concomitant]
     Route: 065
  5. ZOCOR [Concomitant]
     Route: 048
  6. CALCIUM (UNSPECIFIED) [Concomitant]
     Route: 065
  7. VICODIN [Concomitant]
     Route: 065
  8. COUMADIN [Concomitant]
     Route: 065
  9. PREDNISONE [Concomitant]
     Route: 065
  10. ADVAIR DISKUS 100/50 [Concomitant]
     Route: 065
  11. [THERAPY UNSPECIFIED] [Concomitant]
     Indication: BLOOD CHOLESTEROL
     Route: 065
  12. SENOKOT [Concomitant]
     Route: 065
  13. HORMONES (UNSPECIFIED) [Concomitant]
     Route: 065
  14. VISTARIL [Concomitant]
     Route: 065
  15. ZETIA [Concomitant]
     Route: 048
  16. DILANTIN [Concomitant]
     Route: 065
  17. POTASSIUM (UNSPECIFIED) [Concomitant]
     Route: 065
  18. MAGNESIUM (UNSPECIFIED) [Concomitant]
     Route: 065
  19. POLY TUSSIN [Concomitant]
     Route: 065
  20. ALBUTEROL [Concomitant]
     Route: 065
  21. THEO-DUR [Concomitant]
     Route: 065
  22. FOSAMAX [Suspect]
     Indication: OSTEOPENIA
     Route: 048
     Dates: start: 19980101, end: 20101201
  23. SINGULAIR [Concomitant]
     Route: 048
  24. ALUPENT [Concomitant]
     Route: 065
  25. CORTICOSTEROIDS (UNSPECIFIED) [Concomitant]
     Route: 065
     Dates: start: 20060101
  26. SPIRIVA [Concomitant]
     Route: 065
  27. THEOPHYLLINE [Concomitant]
     Route: 065
  28. ESTRATEST [Concomitant]
     Route: 065
  29. ELAVIL [Concomitant]
     Route: 048
  30. FOLIC ACID [Concomitant]
     Route: 065
  31. ATIVAN [Concomitant]
     Route: 065

REACTIONS (14)
  - FEMUR FRACTURE [None]
  - CONVULSION [None]
  - INTRACRANIAL ANEURYSM [None]
  - CHRONIC OBSTRUCTIVE PULMONARY DISEASE [None]
  - HYSTERECTOMY [None]
  - PELVIC PAIN [None]
  - ARTHRALGIA [None]
  - PELVIC FRACTURE [None]
  - EMPHYSEMA [None]
  - CORONARY ARTERY EMBOLISM [None]
  - PNEUMONIA [None]
  - BONE DISORDER [None]
  - FALL [None]
  - LOW TURNOVER OSTEOPATHY [None]
